FAERS Safety Report 7832323-8 (Version None)
Quarter: 2011Q4

REPORT INFORMATION
  Report Type: 
  Country: None (occurrence: None)
  Receive Date: 20111022
  Receipt Date: 20111005
  Transmission Date: 20120403
  Serious: Yes (Hospitalization)
  Sender: FDA-Public Use
  Company Number: US-BAYER-2011-052551

PATIENT
  Age: 19 Year
  Sex: Female
  Weight: 46.712 kg

DRUGS (6)
  1. YASMIN [Suspect]
     Indication: ACNE
     Dosage: UNK
     Dates: start: 20070101, end: 20090101
  2. PREVACID [Concomitant]
     Dosage: 40 MG, UNK
     Route: 048
  3. VITAMIN TAB [Concomitant]
     Dosage: 1 DF, UNK
     Route: 048
  4. ZANTAC [Concomitant]
     Dosage: 150 MG, UNK
     Route: 048
  5. DROSPIRENONE AND ETHINYL ESTRADIOL [Suspect]
     Dosage: UNK
     Dates: start: 20070101, end: 20090101
  6. ZOLOFT [Concomitant]

REACTIONS (3)
  - PAIN [None]
  - CHOLECYSTITIS CHRONIC [None]
  - CHOLECYSTECTOMY [None]
